FAERS Safety Report 23056638 (Version 1)
Quarter: 2023Q4

REPORT INFORMATION
  Report Type: Spontaneous
  Country: DE (occurrence: DE)
  Receive Date: 20231011
  Receipt Date: 20231011
  Transmission Date: 20240110
  Serious: Yes (Hospitalization, Other)
  Sender: FDA-Public Use
  Company Number: None

PATIENT
  Age: 54 Year
  Sex: Male

DRUGS (2)
  1. CYCLOPHOSPHAMIDE [Suspect]
     Active Substance: CYCLOPHOSPHAMIDE
     Indication: Haematopoietic stem cell mobilisation
     Dosage: UNK, D1
     Route: 065
     Dates: start: 20230711
  2. ETOPOSIDE [Suspect]
     Active Substance: ETOPOSIDE
     Indication: Haematopoietic stem cell mobilisation
     Dosage: UNK, D1 PLUS D2
     Route: 065
     Dates: start: 20230711

REACTIONS (8)
  - Inflammatory marker increased [Recovered/Resolved]
  - Febrile neutropenia [Recovered/Resolved]
  - Pyrexia [Recovered/Resolved]
  - Liver abscess [Recovered/Resolved]
  - Abdominal discomfort [Recovered/Resolved]
  - Thrombocytopenia [Recovered/Resolved]
  - Bacterial sepsis [Recovered/Resolved]
  - Hypotension [Recovered/Resolved]

NARRATIVE: CASE EVENT DATE: 20230822
